FAERS Safety Report 19503654 (Version 3)
Quarter: 2021Q3

REPORT INFORMATION
  Report Type: Spontaneous
  Country: GR (occurrence: GR)
  Receive Date: 20210707
  Receipt Date: 20210805
  Transmission Date: 20211014
  Serious: Yes (Other)
  Sender: FDA-Public Use
  Company Number: GR-ASTRAZENECA-2021A589664

PATIENT
  Age: 78 Year
  Sex: Female
  Weight: 60 kg

DRUGS (11)
  1. COSOPT [Concomitant]
     Active Substance: DORZOLAMIDE HYDROCHLORIDE\TIMOLOL MALEATE
  2. EVIOL [Concomitant]
     Active Substance: TOCOPHEROL
     Dates: start: 20210530, end: 20210613
  3. MAXUDIN [Concomitant]
     Active Substance: PRAVASTATIN SODIUM
     Dates: start: 20210530, end: 20210613
  4. ZODIN [Concomitant]
     Dates: start: 20210530, end: 20210613
  5. NEXIUM [Suspect]
     Active Substance: ESOMEPRAZOLE MAGNESIUM
     Indication: ABDOMINAL DISCOMFORT
     Route: 042
  6. NEURONTIN [Concomitant]
     Active Substance: GABAPENTIN
     Dates: start: 20210530, end: 20210613
  7. INEGY [Suspect]
     Active Substance: EZETIMIBE\SIMVASTATIN
     Dosage: 10+40 MILLIGRAM
     Route: 048
  8. INEGY [Suspect]
     Active Substance: EZETIMIBE\SIMVASTATIN
     Dosage: 10+20 MILLIGRAM
     Route: 048
     Dates: start: 2019, end: 20210417
  9. LEXOTANIL [Concomitant]
     Active Substance: BROMAZEPAM
  10. COVERSYL [Concomitant]
     Active Substance: PERINDOPRIL
  11. CONCOR [Concomitant]
     Active Substance: BISOPROLOL FUMARATE

REACTIONS (35)
  - Coccydynia [Unknown]
  - Muscular weakness [Unknown]
  - Pruritus [Recovering/Resolving]
  - Fall [Unknown]
  - Spinal column injury [Unknown]
  - Accident [Unknown]
  - Psoriasis [Unknown]
  - Glaucoma [Unknown]
  - Abnormal dreams [Recovered/Resolved]
  - Gastrointestinal disorder [Unknown]
  - Muscle swelling [Unknown]
  - Confusional state [Recovered/Resolved]
  - Nausea [Unknown]
  - Product dose omission issue [Unknown]
  - Loss of consciousness [Unknown]
  - Tooth fracture [Unknown]
  - Osteopenia [Unknown]
  - Kyphosis [Unknown]
  - Alopecia [Unknown]
  - Syncope [Unknown]
  - Blood glucose abnormal [Unknown]
  - Blood triglycerides increased [Unknown]
  - Amnesia [Recovered/Resolved]
  - Musculoskeletal discomfort [Unknown]
  - Swelling face [Unknown]
  - Arrhythmia [Unknown]
  - Myalgia [Recovering/Resolving]
  - Arthralgia [Recovering/Resolving]
  - Wrist fracture [Unknown]
  - Intraocular pressure increased [Unknown]
  - Blood cholesterol increased [Unknown]
  - Anxiety [Recovered/Resolved]
  - Contusion [Unknown]
  - Vomiting [Unknown]
  - Dizziness [Unknown]
